FAERS Safety Report 24266477 (Version 1)
Quarter: 2024Q3

REPORT INFORMATION
  Report Type: Spontaneous
  Country: US (occurrence: US)
  Receive Date: 20240830
  Receipt Date: 20240830
  Transmission Date: 20241016
  Serious: No
  Sender: AMGEN
  Company Number: US-AMGEN-USASP2024168562

PATIENT
  Age: 75 Year
  Sex: Female

DRUGS (2)
  1. PROLIA [Suspect]
     Active Substance: DENOSUMAB
     Indication: Product used for unknown indication
     Dosage: UNK
     Route: 065
     Dates: start: 2024
  2. DUPIXENT [Suspect]
     Active Substance: DUPILUMAB
     Indication: Sinus polyp
     Dosage: 300 MILLIGRAM, Q2WK
     Route: 058
     Dates: start: 20240322

REACTIONS (2)
  - Dizziness [Unknown]
  - Arthralgia [Unknown]

NARRATIVE: CASE EVENT DATE: 20240101
